FAERS Safety Report 9195106 (Version 1)
Quarter: 2013Q1

REPORT INFORMATION
  Report Type: Spontaneous
  Country: US (occurrence: US)
  Receive Date: 20130328
  Receipt Date: 20130328
  Transmission Date: 20140127
  Serious: No
  Sender: FDA-Public Use
  Company Number: US-ALLERGAN-1206562US

PATIENT
  Age: 61 Year
  Sex: Female

DRUGS (7)
  1. LUMIGAN [Suspect]
     Indication: GLAUCOMA
     Dosage: 1 GTT, QHS, 10 YEARS
     Route: 047
  2. COMBIGAN[R] [Suspect]
     Indication: GLAUCOMA
     Dosage: 1 GTT, BID, 5 YEARS
     Route: 047
     Dates: start: 2007
  3. SIMVASTATIN [Concomitant]
     Indication: BLOOD CHOLESTEROL INCREASED
     Dosage: UNK
     Route: 048
  4. METFORMIN [Concomitant]
     Indication: DIABETES MELLITUS
     Dosage: 500 MG, BID
     Route: 048
  5. EVISTA                             /01303201/ [Concomitant]
     Indication: OSTEOPOROSIS
     Dosage: UNK
     Route: 048
  6. ASPIRIN [Concomitant]
     Indication: PRODUCT USED FOR UNKNOWN INDICATION
     Dosage: 81 MG, QD
     Route: 048
  7. MULTI-VITAMINS VITAFIT [Concomitant]
     Indication: SUPPLEMENTATION THERAPY
     Dosage: UNK
     Route: 048

REACTIONS (1)
  - Dark circles under eyes [Not Recovered/Not Resolved]
